FAERS Safety Report 8932616 (Version 1)
Quarter: 2012Q4

REPORT INFORMATION
  Report Type: 
  Country: US (occurrence: US)
  Receive Date: 20121129
  Receipt Date: 20121129
  Transmission Date: 20130627
  Serious: Yes (Other)
  Sender: FDA-Public Use
  Company Number: PHHY2012US109168

PATIENT
  Age: 20 Year
  Sex: Male

DRUGS (1)
  1. GLEEVEC [Suspect]
     Indication: NEUROFIBROMA
     Dosage: UNK UKN, UNK

REACTIONS (1)
  - Bone marrow oedema [Unknown]
